FAERS Safety Report 16515902 (Version 2)
Quarter: 2019Q3

REPORT INFORMATION
  Report Type: Spontaneous
  Country: US (occurrence: US)
  Receive Date: 20190702
  Receipt Date: 20190815
  Transmission Date: 20191004
  Serious: No
  Sender: FDA-Public Use
  Company Number: US-PFIZER INC-2019277406

PATIENT
  Age: 63 Year
  Sex: Female
  Weight: 49.89 kg

DRUGS (2)
  1. CHANTIX [Suspect]
     Active Substance: VARENICLINE TARTRATE
     Dosage: 2 MG, UNK
  2. CHANTIX [Suspect]
     Active Substance: VARENICLINE TARTRATE
     Indication: SMOKING CESSATION THERAPY
     Dosage: 0.5 MG, 2X/DAY (ONE IN MORNING ONE AT NIGHT )

REACTIONS (9)
  - Depression [Unknown]
  - Anxiety [Unknown]
  - Peripheral swelling [Unknown]
  - Joint swelling [Unknown]
  - Blood sodium decreased [Unknown]
  - Haemoglobin decreased [Unknown]
  - Inappropriate schedule of product administration [Unknown]
  - Blood disorder [Unknown]
  - Corrective lens user [Unknown]
